FAERS Safety Report 12286064 (Version 1)
Quarter: 2016Q2

REPORT INFORMATION
  Report Type: Spontaneous
  Country: CA (occurrence: CA)
  Receive Date: 20160420
  Receipt Date: 20160420
  Transmission Date: 20160815
  Serious: Yes (Hospitalization)
  Sender: FDA-Public Use
  Company Number: CA-BAXTER-2016BAX018893

PATIENT
  Sex: Male

DRUGS (2)
  1. LIDOCAINE HCL 0.8% AND DEXTROSE 5% INJ [Suspect]
     Active Substance: LIDOCAINE
     Indication: SPINAL FUSION SURGERY
     Route: 065
  2. LIDOCAINE HCL 0.8% AND DEXTROSE 5% INJ [Suspect]
     Active Substance: LIDOCAINE
     Indication: OFF LABEL USE

REACTIONS (2)
  - Product quality issue [Unknown]
  - Meningitis [Unknown]
